FAERS Safety Report 24770964 (Version 2)
Quarter: 2024Q4

REPORT INFORMATION
  Report Type: Spontaneous
  Country: FR (occurrence: FR)
  Receive Date: 20241224
  Receipt Date: 20241225
  Transmission Date: 20250115
  Serious: No
  Sender: ABBVIE
  Company Number: None

PATIENT
  Age: 88 Year
  Sex: Male
  Weight: 71 kg

DRUGS (1)
  1. DALBAVANCIN HYDROCHLORIDE [Suspect]
     Active Substance: DALBAVANCIN HYDROCHLORIDE
     Indication: Endocarditis staphylococcal
     Dosage: HAD D1 AND D15, 500 MG
     Route: 042
     Dates: start: 20241124, end: 20241209

REACTIONS (2)
  - Administration site extravasation [Recovering/Resolving]
  - Dermo-hypodermitis [Recovering/Resolving]

NARRATIVE: CASE EVENT DATE: 20241209
